FAERS Safety Report 4277376-1 (Version None)
Quarter: 2004Q1

REPORT INFORMATION
  Report Type: 
  Country: None (occurrence: None)
  Receive Date: 20040121
  Receipt Date: 20040121
  Transmission Date: 20041129
  Serious: Yes (Hospitalization)
  Sender: FDA-Public Use
  Company Number: None

PATIENT
  Age: 49 Year
  Sex: Male

DRUGS (2)
  1. ZOCOR [Suspect]
     Indication: HYPERLIPIDAEMIA
     Dosage: 80MG HS ORAL
     Route: 048
  2. CO-TRIMOXAZOLE [Suspect]
     Indication: URINARY TRACT INFECTION
     Dosage: 800-160 BID ORAL
     Route: 048
     Dates: start: 20040114, end: 20040117

REACTIONS (3)
  - LOSS OF CONSCIOUSNESS [None]
  - MUSCULAR WEAKNESS [None]
  - RHABDOMYOLYSIS [None]
